FAERS Safety Report 5959741-7 (Version None)
Quarter: 2008Q4

REPORT INFORMATION
  Report Type: 
  Country: None (occurrence: None)
  Receive Date: 20081110
  Receipt Date: 20080909
  Transmission Date: 20090506
  Serious: No
  Sender: FDA-Public Use
  Company Number: 2008US002227

PATIENT
  Age: 74 Year
  Sex: Female

DRUGS (11)
  1. LEXISCAN [Suspect]
     Indication: SCAN MYOCARDIAL PERFUSION
     Dates: start: 20080819, end: 20080819
  2. METOPROLOL TARTRATE [Concomitant]
  3. LEVOTHYROXINE SODIUM [Concomitant]
  4. PENTOXIFILLINE [Concomitant]
  5. LIPITOR [Concomitant]
  6. COZAAR [Concomitant]
  7. DYAZIDE [Concomitant]
  8. TRICOR [Concomitant]
  9. INSULIN (INSULIN) [Concomitant]
  10. MOBIC [Concomitant]
  11. NITROGLYCERIN [Concomitant]

REACTIONS (2)
  - NAUSEA [None]
  - VOMITING [None]
